FAERS Safety Report 9350449 (Version 1)
Quarter: 2013Q2

REPORT INFORMATION
  Report Type: Spontaneous
  Country: US (occurrence: US)
  Receive Date: 20130617
  Receipt Date: 20130617
  Transmission Date: 20140414
  Serious: No
  Sender: FDA-Public Use
  Company Number: US-PFIZER INC-2013177152

PATIENT
  Age: 62 Year
  Sex: Male

DRUGS (1)
  1. XALKORI [Suspect]
     Dosage: 250 MG, 2X/DAY
     Dates: start: 20120502

REACTIONS (1)
  - Nasopharyngitis [Unknown]
